FAERS Safety Report 4503370-9 (Version None)
Quarter: 2004Q4

REPORT INFORMATION
  Report Type: 
  Country: None (occurrence: None)
  Receive Date: 20041117
  Receipt Date: 20040412
  Transmission Date: 20050328
  Serious: Yes (Death)
  Sender: FDA-Public Use
  Company Number: US-GLAXOSMITHKLINE-A0507084A

PATIENT
  Age: 14 Year
  Sex: Male
  Weight: 84.1 kg

DRUGS (5)
  1. ADVAIR [Suspect]
     Indication: ASTHMA
     Dates: start: 20020829
  2. ALBUTEROL [Suspect]
     Route: 055
  3. ALBUTEROL [Suspect]
     Indication: ASTHMA
     Route: 055
     Dates: start: 19950901
  4. AMOXICILLIN/CLAVULANIC ACID [Concomitant]
     Dosage: 20TAB CUMULATIVE DOSE
     Route: 048
     Dates: start: 20031003
  5. OCUFLOX [Concomitant]
     Route: 047
     Dates: start: 20031003

REACTIONS (8)
  - ASTHMA [None]
  - CARDIAC ARREST [None]
  - CARDIO-RESPIRATORY ARREST [None]
  - DEPRESSED LEVEL OF CONSCIOUSNESS [None]
  - EPISTAXIS [None]
  - HAEMATEMESIS [None]
  - ILL-DEFINED DISORDER [None]
  - WHEEZING [None]
